FAERS Safety Report 7804996-7 (Version None)
Quarter: 2011Q4

REPORT INFORMATION
  Report Type: 
  Country: None (occurrence: None)
  Receive Date: 20111010
  Receipt Date: 20111007
  Transmission Date: 20120403
  Serious: Yes (Hospitalization)
  Sender: FDA-Public Use
  Company Number: US-GLAXOSMITHKLINE-A0791876A

PATIENT
  Age: 67 Year
  Sex: Male
  Weight: 83.6 kg

DRUGS (10)
  1. METFORMIN HYDROCHLORIDE [Concomitant]
  2. GLIPIZIDE [Concomitant]
  3. ASPIRIN [Concomitant]
  4. PLAVIX [Concomitant]
  5. AVANDAMET [Suspect]
     Indication: TYPE 2 DIABETES MELLITUS
     Route: 048
     Dates: start: 20050428, end: 20050501
  6. LISINOPRIL [Concomitant]
  7. LESCOL XL [Concomitant]
  8. METOPROLOL TARTRATE [Concomitant]
  9. AVANDIA [Suspect]
     Indication: TYPE 2 DIABETES MELLITUS
     Dosage: 4MG PER DAY
     Route: 048
     Dates: start: 20030301, end: 20080101
  10. TOPROL-XL [Concomitant]

REACTIONS (6)
  - TRICUSPID VALVE INCOMPETENCE [None]
  - LEFT VENTRICULAR HYPERTROPHY [None]
  - LEFT ATRIAL DILATATION [None]
  - ISCHAEMIC CARDIOMYOPATHY [None]
  - CARDIAC FAILURE CONGESTIVE [None]
  - MYOCARDIAL INFARCTION [None]
